FAERS Safety Report 8212000-4 (Version None)
Quarter: 2012Q1

REPORT INFORMATION
  Report Type: 
  Country: None (occurrence: None)
  Receive Date: 20120315
  Receipt Date: 20120307
  Transmission Date: 20120608
  Serious: Yes (Other)
  Sender: FDA-Public Use
  Company Number: JP-BAXTER-2012BH007236

PATIENT
  Age: 31 Year
  Sex: Male

DRUGS (4)
  1. CISPLATIN [Suspect]
     Indication: TESTICULAR NEOPLASM
     Route: 065
  2. CYCLOPHOSPHAMIDE [Suspect]
     Indication: TESTICULAR NEOPLASM
     Route: 065
  3. ETOPOSIDE [Suspect]
     Indication: TESTICULAR NEOPLASM
     Route: 065
  4. IFOSFAMIDE [Suspect]
     Indication: TESTICULAR NEOPLASM
     Route: 065

REACTIONS (2)
  - ACUTE MYELOID LEUKAEMIA [None]
  - STEM CELL TRANSPLANT [None]
